FAERS Safety Report 20554458 (Version 1)
Quarter: 2022Q1

REPORT INFORMATION
  Report Type: Spontaneous
  Country: US (occurrence: US)
  Receive Date: 20220304
  Receipt Date: 20220304
  Transmission Date: 20220424
  Serious: No
  Sender: FDA-Public Use
  Company Number: US-BIOMARINAP-US-2022-141822

PATIENT
  Age: 5 Year
  Sex: Female
  Weight: 25.85 kg

DRUGS (1)
  1. KUVAN [Suspect]
     Active Substance: SAPROPTERIN DIHYDROCHLORIDE
     Indication: Phenylketonuria
     Dosage: 500 MILLIGRAM, QD
     Route: 048

REACTIONS (4)
  - Blood iron abnormal [Recovered/Resolved]
  - Insomnia [Recovered/Resolved]
  - Psychomotor hyperactivity [Recovered/Resolved]
  - Emotional disorder [Recovered/Resolved]
